FAERS Safety Report 15386600 (Version 1)
Quarter: 2018Q3

REPORT INFORMATION
  Report Type: Report from Study
  Country: US (occurrence: US)
  Receive Date: 20180914
  Receipt Date: 20180914
  Transmission Date: 20181010
  Serious: Yes (Other)
  Sender: FDA-Public Use
  Company Number: US-SA-2018SA166095

PATIENT
  Age: 28 Year
  Sex: Female

DRUGS (1)
  1. INSULIN GLARGINE/LIXISENATIDE [Suspect]
     Active Substance: INSULIN GLARGINE\LIXISENATIDE
     Indication: TYPE 2 DIABETES MELLITUS
     Dosage: 40 U
     Dates: start: 20180520

REACTIONS (14)
  - Dizziness [Unknown]
  - Glycosylated haemoglobin increased [Unknown]
  - Anxiety [Unknown]
  - Nausea [Not Recovered/Not Resolved]
  - Fatigue [Unknown]
  - Weight decreased [Unknown]
  - Nervousness [Unknown]
  - Blood glucose decreased [Unknown]
  - Decreased appetite [Not Recovered/Not Resolved]
  - Abdominal discomfort [Unknown]
  - Neuropathy peripheral [Unknown]
  - Feeling drunk [Unknown]
  - Migraine [Unknown]
  - Injection site pain [Unknown]

NARRATIVE: CASE EVENT DATE: 20180520
